FAERS Safety Report 8602342-2 (Version None)
Quarter: 2012Q2

REPORT INFORMATION
  Report Type: 
  Country: None (occurrence: None)
  Receive Date: 20120423
  Receipt Date: 20080918
  Transmission Date: 20120825
  Serious: Yes (Other)
  Sender: FDA-Public Use
  Company Number: PHEH2008US07328

PATIENT
  Sex: Female

DRUGS (1)
  1. FEMARA [Suspect]
     Dosage: UNK, UNK
     Dates: start: 20070101

REACTIONS (6)
  - FATIGUE [None]
  - ARTHRALGIA [None]
  - PAIN [None]
  - RESORPTION BONE INCREASED [None]
  - BONE PAIN [None]
  - BLOOD CHOLESTEROL INCREASED [None]
